FAERS Safety Report 11011149 (Version 1)
Quarter: 2015Q2

REPORT INFORMATION
  Report Type: Spontaneous
  Country: BR (occurrence: BR)
  Receive Date: 20150410
  Receipt Date: 20150410
  Transmission Date: 20150821
  Serious: Yes (Other)
  Sender: FDA-Public Use
  Company Number: BR-GE HEALTHCARE MEDICAL DIAGNOSTICS-OMPQ-PR-1504S-0318

PATIENT
  Age: 53 Year
  Sex: Female

DRUGS (2)
  1. OMNIPAQUE [Suspect]
     Active Substance: IOHEXOL
     Indication: MASS
     Route: 042
     Dates: start: 20150331, end: 20150331
  2. OMNIPAQUE [Suspect]
     Active Substance: IOHEXOL
     Indication: DIAGNOSTIC PROCEDURE
     Route: 048
     Dates: start: 20150331, end: 20150331

REACTIONS (3)
  - Pruritus [Recovered/Resolved]
  - Papule [Recovered/Resolved]
  - Contrast media reaction [None]

NARRATIVE: CASE EVENT DATE: 20150331
